FAERS Safety Report 6045181-1 (Version None)
Quarter: 2009Q1

REPORT INFORMATION
  Report Type: 
  Country: None (occurrence: None)
  Receive Date: 20090116
  Receipt Date: 20090116
  Transmission Date: 20090719
  Serious: No
  Sender: FDA-Public Use
  Company Number: None

PATIENT
  Age: 59 Year
  Sex: Female
  Weight: 65.318 kg

DRUGS (1)
  1. ACTONEL [Suspect]
     Indication: OSTEOPENIA
     Dosage: 35 MG WEEKLY

REACTIONS (10)
  - CHOKING [None]
  - COUGH [None]
  - DRY EYE [None]
  - DYSPHAGIA [None]
  - DYSPNOEA [None]
  - EYE PAIN [None]
  - HEADACHE [None]
  - MUSCLE SPASMS [None]
  - RENAL PAIN [None]
  - VOMITING [None]
